FAERS Safety Report 8761693 (Version 3)
Quarter: 2012Q4

REPORT INFORMATION
  Report Type: Spontaneous
  Country: HU (occurrence: None)
  Receive Date: 20120822
  Receipt Date: 20120906
  Transmission Date: 20130627
  Serious: Yes (Life-Threatening, Hospitalization)
  Sender: FDA-Public Use
  Company Number: FK201202295

PATIENT
  Age: 62 Year
  Sex: Female

DRUGS (6)
  1. PACLITAXEL [Suspect]
     Indication: BREAST CANCER
     Dosage: 108 mg, Cyclical, Intravenous (not otherwise specified)
     Route: 042
     Dates: start: 20120730, end: 20120730
  2. PACLITAXEL [Suspect]
     Dosage: 108 mg, Cyclical, Intravenous (not otherwise specified)
     Route: 042
     Dates: start: 20120730, end: 20120730
  3. ZOFRAN [Concomitant]
  4. ZANTAC [Concomitant]
  5. SUPRASTIN (CHLOROPYRAMINE HYDROCHLORIDE) [Concomitant]
  6. SODIUM CHLORIDE [Concomitant]

REACTIONS (4)
  - Anaphylactic reaction [None]
  - Pulmonary oedema [None]
  - Acute respiratory distress syndrome [None]
  - Cyanosis [None]
